FAERS Safety Report 5081229-9 (Version None)
Quarter: 2006Q3

REPORT INFORMATION
  Report Type: 
  Country: None (occurrence: None)
  Receive Date: 20060720
  Receipt Date: 20051018
  Transmission Date: 20061208
  Serious: Yes (Hospitalization)
  Sender: FDA-Public Use
  Company Number: 2006036566

PATIENT
  Age: 65 Year
  Sex: Male

DRUGS (2)
  1. CELEBREX [Suspect]
     Indication: BACK INJURY
     Dosage: (200 MG),ORAL
     Route: 048
     Dates: start: 20040330, end: 20040330
  2. CELEBREX [Suspect]
     Indication: BACK PAIN
     Dosage: (200 MG),ORAL
     Route: 048
     Dates: start: 20040330, end: 20040330

REACTIONS (12)
  - AORTIC VALVE STENOSIS [None]
  - ASTHENIA [None]
  - CORNEAL ABRASION [None]
  - DYSPNOEA [None]
  - EJECTION FRACTION DECREASED [None]
  - HYPERGLYCAEMIA [None]
  - HYPOTHERMIA [None]
  - MUSCLE INJURY [None]
  - NAUSEA [None]
  - PAIN IN EXTREMITY [None]
  - RASH [None]
  - SYNCOPE [None]
